FAERS Safety Report 5429738-4 (Version None)
Quarter: 2007Q3

REPORT INFORMATION
  Report Type: 
  Country: None (occurrence: None)
  Receive Date: 20070829
  Receipt Date: 20070716
  Transmission Date: 20080115
  Serious: No
  Sender: FDA-Public Use
  Company Number: A0649308A

PATIENT
  Age: 58 Year
  Sex: Male
  Weight: 57.7 kg

DRUGS (6)
  1. EPZICOM [Suspect]
     Indication: HIV INFECTION
     Route: 048
     Dates: start: 20070321
  2. VIREAD [Concomitant]
     Indication: HIV INFECTION
     Route: 048
     Dates: start: 20070321
  3. RITONAVIR [Concomitant]
     Indication: HIV INFECTION
     Route: 048
     Dates: start: 20070321
  4. REYATAZ [Concomitant]
     Indication: HIV INFECTION
     Route: 048
     Dates: start: 20070321
  5. PAXIL [Concomitant]
     Indication: DEPRESSION
     Route: 048
  6. PERCOCET [Concomitant]
     Indication: PAIN

REACTIONS (7)
  - ABDOMINAL PAIN [None]
  - COUGH [None]
  - DIARRHOEA [None]
  - DYSPNOEA [None]
  - PAIN [None]
  - PYREXIA [None]
  - RASH VESICULAR [None]
